FAERS Safety Report 24849869 (Version 1)
Quarter: 2025Q1

REPORT INFORMATION
  Report Type: Spontaneous
  Country: GB (occurrence: GB)
  Receive Date: 20250116
  Receipt Date: 20250116
  Transmission Date: 20250409
  Serious: Yes (Hospitalization, Other)
  Sender: PFIZER
  Company Number: GB-ABBVIE-6006818

PATIENT
  Age: 35 Year
  Sex: Female
  Weight: 49 kg

DRUGS (7)
  1. MEDROL [Suspect]
     Active Substance: METHYLPREDNISOLONE
     Indication: Face oedema
     Dates: start: 2024, end: 2024
  2. MEDROL [Suspect]
     Active Substance: METHYLPREDNISOLONE
     Dates: start: 2024, end: 2024
  3. AUGMENTIN [Suspect]
     Active Substance: AMOXICILLIN\CLAVULANATE POTASSIUM
     Indication: Noninfective bartholinitis
     Dates: start: 2024
  4. VISTABEL [Suspect]
     Active Substance: BOTULINUM TOXIN TYPE A
     Indication: Skin wrinkling
     Dates: start: 20240507, end: 20240507
  5. VISTABEL [Suspect]
     Active Substance: BOTULINUM TOXIN TYPE A
     Indication: Skin wrinkling
  6. LEVAQUIN [Suspect]
     Active Substance: LEVOFLOXACIN
     Dosage: 500 MG, EVERY DAY
     Route: 042
     Dates: start: 2024
  7. AMPICILLIN AND SULBACTAM [Suspect]
     Active Substance: AMPICILLIN SODIUM\SULBACTAM SODIUM
     Dosage: UNK, EVERY DAY
     Route: 042
     Dates: start: 2024

REACTIONS (56)
  - Urinary tract infection [Recovered/Resolved]
  - Insomnia [Recovered/Resolved]
  - Angioedema [Recovered/Resolved]
  - Alopecia [Not Recovered/Not Resolved]
  - Paraesthesia [Recovered/Resolved]
  - Arthralgia [Recovered/Resolved]
  - Vitreous floaters [Not Recovered/Not Resolved]
  - Joint swelling [Recovered/Resolved]
  - Dry eye [Recovered/Resolved]
  - Photophobia [Recovered/Resolved]
  - Foreign body sensation in eyes [Recovered/Resolved]
  - Lacrimation decreased [Recovered/Resolved]
  - Face oedema [Recovered/Resolved]
  - C-reactive protein abnormal [Recovered/Resolved]
  - Muscle spasms [Recovered/Resolved]
  - Fatigue [Recovered/Resolved]
  - Stress [Recovered/Resolved]
  - Ear congestion [Recovered/Resolved]
  - Pyrexia [Recovered/Resolved]
  - Lymphadenopathy [Recovered/Resolved]
  - Lymph node pain [Recovered/Resolved]
  - Noninfective bartholinitis [Recovered/Resolved]
  - Inflammatory marker increased [Recovered/Resolved]
  - Vision blurred [Recovered/Resolved]
  - Asthenia [Recovered/Resolved]
  - Swelling of eyelid [Not Recovered/Not Resolved]
  - Skin burning sensation [Recovered/Resolved]
  - Headache [Recovered/Resolved]
  - Dyskinesia [Recovered/Resolved]
  - Cystitis [Unknown]
  - Nervousness [Unknown]
  - Food intolerance [Not Recovered/Not Resolved]
  - Urinary incontinence [Not Recovered/Not Resolved]
  - Drug intolerance [Not Recovered/Not Resolved]
  - Muscle twitching [Recovered/Resolved]
  - Hypoaesthesia [Recovered/Resolved]
  - Gastrointestinal disorder [Recovered/Resolved]
  - Dyspepsia [Unknown]
  - Bladder discomfort [Unknown]
  - Dry skin [Unknown]
  - Anxiety [Recovered/Resolved]
  - Drug hypersensitivity [Unknown]
  - Hair texture abnormal [Not Recovered/Not Resolved]
  - Muscle contractions involuntary [Not Recovered/Not Resolved]
  - Muscle atrophy [Not Recovered/Not Resolved]
  - Toothache [Unknown]
  - Pain [Recovered/Resolved]
  - Madarosis [Unknown]
  - Blepharospasm [Unknown]
  - Vitamin D decreased [Unknown]
  - Muscular weakness [Unknown]
  - Rash [Unknown]
  - Oedema genital [Recovered/Resolved]
  - Dyspepsia [Recovered/Resolved]
  - Rash [Recovered/Resolved]
  - Nervousness [Recovered/Resolved]

NARRATIVE: CASE EVENT DATE: 20240501
